FAERS Safety Report 8957055 (Version 1)
Quarter: 2012Q4

REPORT INFORMATION
  Report Type: 
  Country: CA (occurrence: CA)
  Receive Date: 20121211
  Receipt Date: 20121211
  Transmission Date: 20130627
  Serious: Yes (Other)
  Sender: FDA-Public Use
  Company Number: CA-ROCHE-1166719

PATIENT
  Sex: Female
  Weight: 108 kg

DRUGS (6)
  1. XOLAIR [Suspect]
     Indication: ASTHMA
     Route: 058
     Dates: start: 20080717
  2. PREDNISONE [Concomitant]
     Route: 065
  3. PREDNISONE [Concomitant]
     Route: 065
     Dates: start: 20081223
  4. PREDNISONE [Concomitant]
     Route: 065
  5. BUDESONIDE/FORMOTEROL FUMARATE [Concomitant]
  6. SINGULAIR [Concomitant]

REACTIONS (3)
  - Sinusitis [Unknown]
  - Asthma [Unknown]
  - Blood pressure increased [Unknown]
